FAERS Safety Report 9931642 (Version 1)
Quarter: 2014Q1

REPORT INFORMATION
  Report Type: Report from Study
  Country: ES (occurrence: ES)
  Receive Date: 20140228
  Receipt Date: 20140228
  Transmission Date: 20141002
  Serious: Yes (Other)
  Sender: FDA-Public Use
  Company Number: ES-VERTEX PHARMACEUTICALS INC-2014-001015

PATIENT
  Sex: 0

DRUGS (10)
  1. TELAPREVIR [Suspect]
     Indication: HEPATITIS C
  2. RIBAVIRIN [Suspect]
     Indication: CHRONIC HEPATITIS C
  3. PEGINTERFERON ALFA [Suspect]
     Indication: CHRONIC HEPATITIS C
  4. MARAVIROC [Concomitant]
     Indication: HIV INFECTION
  5. RALTEGRAVIR [Concomitant]
     Indication: HIV INFECTION
  6. ETRAVIRINE [Concomitant]
     Indication: HIV INFECTION
  7. TRUVADA [Concomitant]
     Indication: HIV INFECTION
  8. ABACAVIR [Concomitant]
     Indication: HIV INFECTION
  9. LAMIVUDINE [Concomitant]
     Indication: HIV INFECTION
  10. TENOFOVIR [Concomitant]
     Indication: HIV INFECTION

REACTIONS (4)
  - Mental disorder [Unknown]
  - Off label use [Unknown]
  - Skin reaction [Unknown]
  - Anaemia [Unknown]
